FAERS Safety Report 5280362-6 (Version None)
Quarter: 2007Q1

REPORT INFORMATION
  Report Type: 
  Country: None (occurrence: None)
  Receive Date: 20061229
  Receipt Date: 20060814
  Transmission Date: 20070707
  Serious: Yes (Other)
  Sender: FDA-Public Use
  Company Number: 2006UW16119

PATIENT
  Age: 51 Year
  Sex: Female
  Weight: 58.059 kg

DRUGS (5)
  1. CRESTOR [Suspect]
     Indication: BLOOD CHOLESTEROL INCREASED
     Dosage: 10 MG PO
     Route: 048
     Dates: start: 20060807
  2. SYNTHROID [Concomitant]
  3. ALLEGRA [Concomitant]
  4. ASPIRIN [Concomitant]
  5. VITAMIN CAP [Concomitant]

REACTIONS (2)
  - DYSGEUSIA [None]
  - NAUSEA [None]
